FAERS Safety Report 6170746-6 (Version None)
Quarter: 2009Q2

REPORT INFORMATION
  Report Type: 
  Country: None (occurrence: None)
  Receive Date: 20090427
  Receipt Date: 20090424
  Transmission Date: 20091009
  Serious: Yes (Other)
  Sender: FDA-Public Use
  Company Number: TPA2009A00508

PATIENT
  Age: 62 Year
  Sex: Male
  Weight: 97.977 kg

DRUGS (2)
  1. ACTOS [Suspect]
     Indication: DIABETES MELLITUS
     Dosage: 45 MG, 1 IN 1 D, PER ORAL
     Route: 048
     Dates: start: 20070626, end: 20090316
  2. AVANDIA [Suspect]
     Indication: DIABETES MELLITUS
     Dosage: 4 MG, 1 IN 1 D, PER ORAL
     Route: 048
     Dates: start: 20040101, end: 20070501

REACTIONS (2)
  - FALL [None]
  - TIBIA FRACTURE [None]
